FAERS Safety Report 23293967 (Version 1)
Quarter: 2023Q4

REPORT INFORMATION
  Report Type: Spontaneous
  Country: US (occurrence: None)
  Receive Date: 20231213
  Receipt Date: 20231213
  Transmission Date: 20240110
  Serious: No
  Sender: FDA-Public Use
  Company Number: None

PATIENT
  Age: 45 Year
  Sex: Male

DRUGS (1)
  1. ADBRY [Suspect]
     Active Substance: TRALOKINUMAB-LDRM
     Indication: Dermatitis atopic
     Dosage: INJECT 600MG (4 SYRINGES) SUBCUTANEOUSLY DAY 1, THEN  300 MG ( 2 SYRINGES) EVERY 2 WEEKS
     Route: 058
     Dates: start: 202308

REACTIONS (1)
  - Eye infection [None]
